FAERS Safety Report 19022441 (Version 1)
Quarter: 2021Q1

REPORT INFORMATION
  Report Type: Spontaneous
  Country: US (occurrence: US)
  Receive Date: 20210318
  Receipt Date: 20210318
  Transmission Date: 20210420
  Serious: Yes (Life-Threatening, Hospitalization)
  Sender: FDA-Public Use
  Company Number: US-STRIDES ARCOLAB LIMITED-2021SP002421

PATIENT
  Age: 45 Year
  Sex: Female

DRUGS (1)
  1. PREDNISOLONE. [Suspect]
     Active Substance: PREDNISOLONE
     Indication: GLOMERULONEPHRITIS MEMBRANOUS
     Dosage: UNK, ORAL ROUTE FOR 6 WEEKS
     Route: 048

REACTIONS (5)
  - Escherichia infection [Unknown]
  - Klebsiella bacteraemia [Unknown]
  - Hyperglycaemia [Unknown]
  - Strongyloidiasis [Unknown]
  - Tuberculosis gastrointestinal [Recovered/Resolved]
